FAERS Safety Report 18858329 (Version 1)
Quarter: 2021Q1

REPORT INFORMATION
  Report Type: Spontaneous
  Country: US (occurrence: US)
  Receive Date: 20210205
  Receipt Date: 20210205
  Transmission Date: 20210420
  Serious: Yes (Other)
  Sender: FDA-Public Use
  Company Number: None

PATIENT
  Age: 29 Year
  Sex: Male

DRUGS (5)
  1. SPIRONOLACTONE 100MG [Concomitant]
     Active Substance: SPIRONOLACTONE
  2. VALACYCLOVIR HCL 500MG [Concomitant]
     Active Substance: VALACYCLOVIR HYDROCHLORIDE
  3. PROMETHAZINE HCL 25MG [Concomitant]
  4. BIKTARVY [Suspect]
     Active Substance: BICTEGRAVIR SODIUM\EMTRICITABINE\TENOFOVIR ALAFENAMIDE FUMARATE
     Indication: ACQUIRED IMMUNODEFICIENCY SYNDROME
     Route: 048
     Dates: start: 20200127, end: 20201229
  5. VITAMIN D 1.25 MG [Concomitant]

REACTIONS (4)
  - Vomiting [None]
  - Nausea [None]
  - Adverse drug reaction [None]
  - Treatment noncompliance [None]

NARRATIVE: CASE EVENT DATE: 20210205
